FAERS Safety Report 7778737-6 (Version None)
Quarter: 2011Q3

REPORT INFORMATION
  Report Type: 
  Country: None (occurrence: None)
  Receive Date: 20110926
  Receipt Date: 20110920
  Transmission Date: 20111222
  Serious: Yes (Other)
  Sender: FDA-Public Use
  Company Number: US-BAYER-2011-032027

PATIENT
  Age: 65 Year
  Sex: Female

DRUGS (7)
  1. COREG [Concomitant]
     Dosage: 3.5 MG, BID
  2. PROMETRIUM [Concomitant]
     Dosage: 100 MG, UNK
  3. AVELOX [Suspect]
     Indication: VIRAL INFECTION
     Dosage: 400 MG, UNK
     Route: 048
     Dates: start: 20090401, end: 20090401
  4. BENICAR [Concomitant]
  5. HYDROCHLOROTHIAZIDE [Concomitant]
     Dosage: 12.5 MG, UNK
  6. AVELOX [Suspect]
     Indication: PNEUMONIA
  7. VIVELLE [Concomitant]
     Dosage: 0.032 MG, UNK
     Route: 062

REACTIONS (6)
  - GASTROINTESTINAL PAIN [None]
  - CARBOHYDRATE INTOLERANCE [None]
  - OVERGROWTH BACTERIAL [None]
  - LACTOSE INTOLERANCE [None]
  - IRRITABLE BOWEL SYNDROME [None]
  - DIARRHOEA [None]
